FAERS Safety Report 22519413 (Version 1)
Quarter: 2023Q2

REPORT INFORMATION
  Report Type: Spontaneous
  Country: US (occurrence: US)
  Receive Date: 20230605
  Receipt Date: 20230605
  Transmission Date: 20230721
  Serious: Yes (Death, Hospitalization, Other)
  Sender: FDA-Public Use
  Company Number: US-Accord-360680

PATIENT
  Age: 70 Year
  Sex: Male

DRUGS (2)
  1. HYDROCHLOROTHIAZIDE [Suspect]
     Active Substance: HYDROCHLOROTHIAZIDE
     Indication: Hypertension
     Dosage: TAKEN FOR AROUND 10 YEARS
  2. ALOGLIPTIN [Suspect]
     Active Substance: ALOGLIPTIN
     Indication: Diabetes mellitus
     Dosage: TAKEN FOR THE PAST FOUR YEARS

REACTIONS (3)
  - Pancreatitis necrotising [Fatal]
  - Renal failure [Unknown]
  - Respiratory failure [Unknown]
